FAERS Safety Report 16026727 (Version 3)
Quarter: 2019Q4

REPORT INFORMATION
  Report Type: Spontaneous
  Country: ES (occurrence: ES)
  Receive Date: 20190303
  Receipt Date: 20191022
  Transmission Date: 20200122
  Serious: Yes (Other)
  Sender: FDA-Public Use
  Company Number: ES-ACCORD-111054

PATIENT
  Age: 45 Year
  Sex: Male

DRUGS (1)
  1. TOPIRAMATE. [Suspect]
     Active Substance: TOPIRAMATE
     Indication: DRUG DEPENDENCE
     Dosage: SUBSEQUENTLY INCREASING THE DOSE TO 50 MG/DAY

REACTIONS (4)
  - Myopia [Recovered/Resolved]
  - Angle closure glaucoma [Recovered/Resolved]
  - Off label use [Unknown]
  - Choroidal effusion [Recovered/Resolved]
